FAERS Safety Report 9007855 (Version 1)
Quarter: 2013Q1

REPORT INFORMATION
  Report Type: Spontaneous
  Country: US (occurrence: US)
  Receive Date: 20130110
  Receipt Date: 20130110
  Transmission Date: 20140127
  Serious: Yes (Other)
  Sender: FDA-Public Use
  Company Number: US-B.I. PHARMACEUTICALS,INC./RIDGEFIELD-2013-BI-00078BP

PATIENT
  Age: 58 Year
  Sex: Female
  Weight: 98 kg

DRUGS (2)
  1. SPIRIVA [Suspect]
     Indication: CHRONIC OBSTRUCTIVE PULMONARY DISEASE
     Dosage: 18 MCG
     Route: 055
     Dates: start: 2010
  2. SPIRIVA [Suspect]
     Dosage: 18 MCG
     Route: 048
     Dates: start: 20130102, end: 20130102

REACTIONS (4)
  - Breast cancer [Recovered/Resolved]
  - Weight increased [Not Recovered/Not Resolved]
  - Wheezing [Recovered/Resolved]
  - Incorrect route of drug administration [Recovered/Resolved]
